FAERS Safety Report 15665296 (Version 1)
Quarter: 2018Q4

REPORT INFORMATION
  Report Type: Spontaneous
  Country: US (occurrence: US)
  Receive Date: 20181128
  Receipt Date: 20181128
  Transmission Date: 20190205
  Serious: No
  Sender: FDA-Public Use
  Company Number: US-PERRIGO-18US007721

PATIENT
  Age: 82 Year
  Sex: Male
  Weight: 64.4 kg

DRUGS (3)
  1. NICOTINE POLACRILEX [Suspect]
     Active Substance: NICOTINE
     Indication: SMOKING CESSATION THERAPY
     Dosage: 2 MG, EVERY 2 TO 3 HOURS
     Route: 060
     Dates: start: 20180727, end: 20180728
  2. ANTIHYPERTENSIVES AND DIURETICS IN COMBINATIO [Concomitant]
     Indication: HYPERTENSION
     Dosage: UNK
     Route: 065
     Dates: start: 2017
  3. NICOTINE POLACRILEX [Suspect]
     Active Substance: NICOTINE
     Dosage: 4 MG, EVERY 2 TO 3 HOURS
     Route: 060
     Dates: start: 20180729, end: 20180729

REACTIONS (4)
  - Drug effect delayed [Unknown]
  - Salivary hypersecretion [Recovered/Resolved]
  - Incorrect dose administered [Recovered/Resolved]
  - Wrong technique in product usage process [Recovered/Resolved]

NARRATIVE: CASE EVENT DATE: 20180727
